FAERS Safety Report 9432442 (Version 1)
Quarter: 2013Q3

REPORT INFORMATION
  Report Type: Spontaneous
  Country: JP (occurrence: JP)
  Receive Date: 20130731
  Receipt Date: 20130731
  Transmission Date: 20140515
  Serious: Yes (Other)
  Sender: FDA-Public Use
  Company Number: PHHY2013JP080666

PATIENT
  Age: 64 Year
  Sex: Female

DRUGS (3)
  1. CARBAMAZEPINE [Suspect]
     Indication: BIPOLAR DISORDER
     Dosage: UNK UKN, UNK
     Route: 048
  2. LAMOTRIGINE [Suspect]
     Indication: BIPOLAR DISORDER
     Dosage: UNK UKN, UNK
     Route: 048
  3. LAMOTRIGINE [Suspect]
     Dosage: 200 MG, UNK
     Route: 048

REACTIONS (3)
  - Oculomucocutaneous syndrome [Unknown]
  - Drug eruption [Unknown]
  - Rash [Recovering/Resolving]
